FAERS Safety Report 17243726 (Version 1)
Quarter: 2020Q1

REPORT INFORMATION
  Report Type: Spontaneous
  Country: US (occurrence: US)
  Receive Date: 20200107
  Receipt Date: 20200107
  Transmission Date: 20200409
  Serious: No
  Sender: FDA-Public Use
  Company Number: US-ROCHE-2244259

PATIENT
  Age: 59 Year
  Sex: Female

DRUGS (2)
  1. ACTIVASE [Suspect]
     Active Substance: ALTEPLASE
     Indication: PRODUCT USED FOR UNKNOWN INDICATION
     Dosage: 6.4MG TPA BOLUS AT 18:40
     Route: 065
  2. ACTIVASE [Suspect]
     Active Substance: ALTEPLASE
     Dosage: 60.4MG TPA COMPLETED AT 19:37
     Route: 065

REACTIONS (1)
  - Lip swelling [Unknown]

NARRATIVE: CASE EVENT DATE: 20190101
